FAERS Safety Report 15382232 (Version 1)
Quarter: 2018Q3

REPORT INFORMATION
  Report Type: Spontaneous
  Country: US (occurrence: US)
  Receive Date: 20180913
  Receipt Date: 20180913
  Transmission Date: 20181010
  Serious: No
  Sender: FDA-Public Use
  Company Number: US-ASTELLAS-2018US009300

PATIENT
  Sex: Male

DRUGS (2)
  1. XTANDI [Suspect]
     Active Substance: ENZALUTAMIDE
     Indication: PROSTATE CANCER
     Route: 065
     Dates: start: 20171222
  2. XTANDI [Suspect]
     Active Substance: ENZALUTAMIDE
     Route: 065

REACTIONS (9)
  - Underdose [Unknown]
  - Muscular weakness [Unknown]
  - Hypoaesthesia [Unknown]
  - Feeling jittery [Unknown]
  - Thinking abnormal [Unknown]
  - Insomnia [Unknown]
  - Vision blurred [Unknown]
  - Asthenia [Unknown]
  - Feeling abnormal [Unknown]
